FAERS Safety Report 5737994-8 (Version None)
Quarter: 2008Q2

REPORT INFORMATION
  Report Type: 
  Country: None (occurrence: None)
  Receive Date: 20080508
  Receipt Date: 20070503
  Transmission Date: 20081010
  Serious: Yes (Other)
  Sender: FDA-Public Use
  Company Number: 36722

PATIENT
  Age: 20 Year
  Sex: Male

DRUGS (2)
  1. ACYCLOVIR [Suspect]
     Indication: HERPES ZOSTER
     Dosage: 700 MG IV EVERY 8 HOURS (TOTAL O
     Dates: start: 20070428, end: 20070429
  2. DILANTIN [Concomitant]

REACTIONS (2)
  - RENAL FAILURE [None]
  - RENAL IMPAIRMENT [None]
